FAERS Safety Report 9592853 (Version 1)
Quarter: 2013Q4

REPORT INFORMATION
  Report Type: Spontaneous
  Country: CA (occurrence: CA)
  Receive Date: 20131004
  Receipt Date: 20131004
  Transmission Date: 20140711
  Serious: Yes (Hospitalization, Other)
  Sender: FDA-Public Use
  Company Number: CA-NOVOPROD-388637

PATIENT
  Age: 45 Year
  Sex: Female

DRUGS (4)
  1. NOVOLIN [Suspect]
     Indication: TYPE 1 DIABETES MELLITUS
     Route: 058
  2. HUMALOG [Suspect]
     Indication: TYPE 1 DIABETES MELLITUS
     Route: 058
  3. NOVORAPID PENFILL [Concomitant]
     Indication: TYPE 1 DIABETES MELLITUS
     Route: 058
  4. LANTUS [Concomitant]
     Indication: TYPE 1 DIABETES MELLITUS
     Route: 058

REACTIONS (2)
  - Myocardial infarction [Recovered/Resolved]
  - Burning sensation [Recovered/Resolved]
